FAERS Safety Report 9784282 (Version 2)
Quarter: 2014Q1

REPORT INFORMATION
  Report Type: Spontaneous
  Country: US (occurrence: US)
  Receive Date: 20131226
  Receipt Date: 20140204
  Transmission Date: 20141002
  Serious: No
  Sender: FDA-Public Use
  Company Number: US-BIOGENIDEC-2013BI122029

PATIENT
  Sex: Female
  Weight: 58 kg

DRUGS (13)
  1. TECFIDERA [Suspect]
     Indication: PRODUCT USED FOR UNKNOWN INDICATION
     Route: 048
  2. ACYCLOVIR [Concomitant]
  3. BUPROPION [Concomitant]
  4. CALCIUM 1000 [Concomitant]
  5. KLONOPIN [Concomitant]
  6. LEXAPRO [Concomitant]
  7. LIPITOR [Concomitant]
  8. NITROSTAT [Concomitant]
  9. OMEPRAZOLE [Concomitant]
  10. PLAQUENIL [Concomitant]
  11. PLAVIX [Concomitant]
  12. TAMSULOSIN [Concomitant]
  13. TOPROLXL [Concomitant]

REACTIONS (1)
  - Dizziness [Unknown]
